FAERS Safety Report 6073391-6 (Version None)
Quarter: 2009Q1

REPORT INFORMATION
  Report Type: 
  Country: None (occurrence: None)
  Receive Date: 20090205
  Receipt Date: 20090120
  Transmission Date: 20090719
  Serious: Yes (Other)
  Sender: FDA-Public Use
  Company Number: 8041850

PATIENT
  Age: 32 Year
  Sex: Male

DRUGS (2)
  1. KEPPRA [Suspect]
     Dosage: 1000 2/D PO
     Route: 048
  2. SERTRALINE [Suspect]
     Dosage: 50 MG /D PO
     Route: 048

REACTIONS (1)
  - HOMICIDE [None]
